FAERS Safety Report 6711730-0 (Version None)
Quarter: 2010Q2

REPORT INFORMATION
  Report Type: 
  Country: None (occurrence: None)
  Receive Date: 20100505
  Receipt Date: 20100426
  Transmission Date: 20101027
  Serious: Yes (Other)
  Sender: FDA-Public Use
  Company Number: BR-ROCHE-700251

PATIENT
  Sex: Male

DRUGS (1)
  1. ROACUTAN [Suspect]
     Dosage: TAKEN PER WEEK
     Route: 048
     Dates: start: 20091201, end: 20100401

REACTIONS (2)
  - OSTEONECROSIS [None]
  - PAIN [None]
